FAERS Safety Report 6357830-9 (Version None)
Quarter: 2009Q3

REPORT INFORMATION
  Report Type: 
  Country: None (occurrence: None)
  Receive Date: 20090916
  Receipt Date: 20090909
  Transmission Date: 20100115
  Serious: Yes (Hospitalization)
  Sender: FDA-Public Use
  Company Number: US-GILEAD-2009-0023511

PATIENT
  Sex: Female

DRUGS (15)
  1. LETAIRIS [Suspect]
  2. DIGOXIN [Concomitant]
     Indication: CARDIAC FAILURE CONGESTIVE
  3. VENTAVIS [Concomitant]
  4. LOVENOX [Concomitant]
     Indication: PROPHYLAXIS
  5. ALBUTEROL [Concomitant]
     Indication: ASTHMA
  6. ADVAIR HFA [Concomitant]
     Indication: ASTHMA
  7. SPIRIVA [Concomitant]
     Indication: ASTHMA
  8. PLAQUENIL [Concomitant]
     Indication: SYSTEMIC LUPUS ERYTHEMATOSUS
  9. NEXIUM [Concomitant]
     Indication: GASTROOESOPHAGEAL REFLUX DISEASE
  10. METOCLOPRAMIDE [Concomitant]
     Indication: GASTROOESOPHAGEAL REFLUX DISEASE
  11. SINGULAIR [Concomitant]
     Indication: ASTHMA
  12. MUCINEX [Concomitant]
     Indication: ASTHMA
  13. AMOXICILLIN [Concomitant]
     Indication: TOOTH ABSCESS
  14. AMBIEN [Concomitant]
     Indication: INSOMNIA
  15. MAG OXIDE [Concomitant]

REACTIONS (3)
  - DEHYDRATION [None]
  - ORTHOSTATIC HYPOTENSION [None]
  - SYNCOPE [None]
